FAERS Safety Report 9193697 (Version 2)
Quarter: 2013Q2

REPORT INFORMATION
  Report Type: Spontaneous
  Country: IN (occurrence: IN)
  Receive Date: 20130327
  Receipt Date: 20130409
  Transmission Date: 20140414
  Serious: Yes (Other)
  Sender: FDA-Public Use
  Company Number: IN-ASTRAZENECA-2013SE18531

PATIENT
  Age: 35 Year
  Sex: Female
  Weight: 60 kg

DRUGS (2)
  1. BUPIVACAINE [Suspect]
     Indication: SPINAL ANAESTHESIA
     Route: 037
  2. BUPIVACAINE [Suspect]
     Indication: SPINAL ANAESTHESIA
     Route: 037

REACTIONS (2)
  - Procedural complication [Recovered/Resolved]
  - Drug ineffective [Unknown]
